FAERS Safety Report 7649017-4 (Version None)
Quarter: 2011Q3

REPORT INFORMATION
  Report Type: 
  Country: None (occurrence: None)
  Receive Date: 20110802
  Receipt Date: 20110720
  Transmission Date: 20111222
  Serious: Yes (Other)
  Sender: FDA-Public Use
  Company Number: US-ASTRAZENECA-2008UW24550

PATIENT
  Age: 30 Year
  Sex: Female
  Weight: 78.9 kg

DRUGS (13)
  1. PROCHLORPERAZINE [Concomitant]
     Dates: start: 20051122
  2. INVEGA [Concomitant]
     Dates: start: 20070101
  3. ZOLOFT [Concomitant]
     Dates: start: 20031211, end: 20060810
  4. PAMINE FORATE [Concomitant]
     Dates: start: 20050721
  5. SEROQUEL [Suspect]
     Indication: DEPRESSION
     Dosage: 25-500 MG
     Route: 048
     Dates: start: 20031219, end: 20080201
  6. SEROQUEL [Suspect]
     Dosage: 25 MG
     Route: 048
     Dates: start: 20031219
  7. SEROQUEL [Suspect]
     Dosage: 25 MG
     Route: 048
     Dates: start: 20031219
  8. FLUCONAZOLE [Concomitant]
     Dates: start: 20050801
  9. HYDROXYZINE HCL [Concomitant]
     Dates: start: 20050720
  10. DIAZEPAM [Concomitant]
     Dates: start: 20031117
  11. SEROQUEL [Suspect]
     Indication: BIPOLAR DISORDER
     Dosage: 25-500 MG
     Route: 048
     Dates: start: 20031219, end: 20080201
  12. TRAZODONE HYDROCHLORIDE [Concomitant]
     Dates: start: 20031211, end: 20071231
  13. BUSPIRONE HCL [Concomitant]

REACTIONS (7)
  - BLOOD CHOLESTEROL INCREASED [None]
  - KETOACIDOSIS [None]
  - NECROBIOSIS LIPOIDICA DIABETICORUM [None]
  - DIABETES MELLITUS [None]
  - BLOOD TRIGLYCERIDES INCREASED [None]
  - NEUROPATHY PERIPHERAL [None]
  - BACK INJURY [None]
